FAERS Safety Report 9223390 (Version 2)
Quarter: 2013Q2

REPORT INFORMATION
  Report Type: Spontaneous
  Country: US (occurrence: US)
  Receive Date: 20130410
  Receipt Date: 20130619
  Transmission Date: 20140414
  Serious: No
  Sender: FDA-Public Use
  Company Number: US-009507513-1304USA003235

PATIENT
  Age: 48 Year
  Sex: Female
  Weight: 54.42 kg

DRUGS (3)
  1. ZOCOR [Suspect]
     Indication: BLOOD CHOLESTEROL INCREASED
     Dosage: 10 MG, ONCE DAILY OR EVERY OTHER DAY
     Route: 048
     Dates: start: 2009, end: 201304
  2. ZOCOR [Suspect]
     Indication: LIPIDS INCREASED
     Dosage: UNK, QOD X 1 WK
     Route: 048
     Dates: start: 201305
  3. CELEBREX [Concomitant]

REACTIONS (2)
  - Eye pain [Recovered/Resolved]
  - Inappropriate schedule of drug administration [Unknown]
